FAERS Safety Report 8237975-9 (Version None)
Quarter: 2012Q1

REPORT INFORMATION
  Report Type: 
  Country: None (occurrence: None)
  Receive Date: 20120327
  Receipt Date: 20120319
  Transmission Date: 20120608
  Serious: Yes (Life-Threatening)
  Sender: FDA-Public Use
  Company Number: GB-BRISTOL-MYERS SQUIBB COMPANY-16472805

PATIENT
  Age: 63 Year
  Sex: Female

DRUGS (5)
  1. ATORVASTATIN [Concomitant]
  2. METFORMIN HCL [Suspect]
  3. CREON [Concomitant]
     Dosage: 1DF=10000 UNIT NOS
  4. PANADEINE CO [Suspect]
     Indication: BACK PAIN
     Dosage: 500MG TAB IS THE STRENGTH. 1DF=2 TAB 6 HOURLY
  5. AMLODIPINE [Concomitant]

REACTIONS (1)
  - METABOLIC ACIDOSIS [None]
